FAERS Safety Report 4850731-4 (Version None)
Quarter: 2005Q4

REPORT INFORMATION
  Report Type: 
  Country: None (occurrence: None)
  Receive Date: 20051208
  Receipt Date: 20051128
  Transmission Date: 20060501
  Serious: Yes (Other)
  Sender: FDA-Public Use
  Company Number: 2005162457

PATIENT
  Sex: Female

DRUGS (1)
  1. ATORVASTATIN CALCIUM [Suspect]
     Dosage: 20 MG (20 MG 1 IN 1 D) ORAL
     Route: 048
     Dates: start: 19980101, end: 19990101

REACTIONS (2)
  - NEOPLASM MALIGNANT [None]
  - PANIC ATTACK [None]
